FAERS Safety Report 4296398-8 (Version None)
Quarter: 2004Q1

REPORT INFORMATION
  Report Type: 
  Country: None (occurrence: None)
  Receive Date: 20040213
  Receipt Date: 20040213
  Transmission Date: 20041129
  Serious: Yes (Hospitalization)
  Sender: FDA-Public Use
  Company Number: None

PATIENT
  Sex: Male
  Weight: 87.5442 kg

DRUGS (2)
  1. NPH INSULIN [Suspect]
     Indication: DIABETES MELLITUS
     Dosage: 22 UNITS, PRIOR TO ADMISSION
  2. EYE DROPS [Concomitant]

REACTIONS (2)
  - BLOOD GLUCOSE DECREASED [None]
  - TREATMENT NONCOMPLIANCE [None]
